FAERS Safety Report 23991723 (Version 2)
Quarter: 2024Q3

REPORT INFORMATION
  Report Type: Report from Study
  Country: US (occurrence: US)
  Receive Date: 20240619
  Receipt Date: 20240701
  Transmission Date: 20241017
  Serious: Yes (Other)
  Sender: APELLIS PHARMACEUTICALS
  Company Number: US-APELLIS-2024-APL-0000170

PATIENT

DRUGS (1)
  1. PEGCETACOPLAN [Suspect]
     Active Substance: PEGCETACOPLAN
     Indication: Paroxysmal nocturnal haemoglobinuria
     Dosage: 1080MG TWICE WEEKLY
     Route: 058
     Dates: start: 20240430

REACTIONS (5)
  - Haemoglobin decreased [Unknown]
  - Platelet count decreased [Unknown]
  - Product administration error [Unknown]
  - Circumstance or information capable of leading to medication error [Unknown]
  - Injection site hypersensitivity [Unknown]

NARRATIVE: CASE EVENT DATE: 20240517
